FAERS Safety Report 14381606 (Version 1)
Quarter: 2018Q1

REPORT INFORMATION
  Report Type: Report from Study
  Country: BR (occurrence: BR)
  Receive Date: 20180112
  Receipt Date: 20180112
  Transmission Date: 20180509
  Serious: Yes (Other)
  Sender: FDA-Public Use
  Company Number: BR-JNJFOC-20180113129

PATIENT
  Age: 23 Year
  Sex: Male

DRUGS (2)
  1. AZATHIOPRINE. [Concomitant]
     Active Substance: AZATHIOPRINE
     Route: 065
  2. INFLIXIMAB, RECOMBINANT [Suspect]
     Active Substance: INFLIXIMAB
     Indication: PRODUCT USED FOR UNKNOWN INDICATION
     Route: 042

REACTIONS (4)
  - Diarrhoea haemorrhagic [Not Recovered/Not Resolved]
  - Malaise [Not Recovered/Not Resolved]
  - Vomiting [Not Recovered/Not Resolved]
  - Proctocolectomy [Recovered/Resolved]

NARRATIVE: CASE EVENT DATE: 201707
